FAERS Safety Report 9416172 (Version 1)
Quarter: 2013Q3

REPORT INFORMATION
  Report Type: Spontaneous
  Country: US (occurrence: US)
  Receive Date: 20130724
  Receipt Date: 20130724
  Transmission Date: 20140515
  Serious: No
  Sender: FDA-Public Use
  Company Number: US-BAYER-2013-086370

PATIENT
  Age: 45 Year
  Sex: Female

DRUGS (2)
  1. MIRENA [Suspect]
     Indication: MENORRHAGIA
     Dosage: 20 MCG/24HR, CONT
     Route: 015
     Dates: start: 2011, end: 20130715
  2. MIRENA [Suspect]
     Indication: CONTRACEPTION

REACTIONS (9)
  - Periarthritis [None]
  - Anxiety [Recovered/Resolved]
  - Arthralgia [None]
  - Arthralgia [None]
  - Asthenia [None]
  - Alopecia [None]
  - Insomnia [None]
  - Skin disorder [None]
  - Weight increased [None]
